FAERS Safety Report 15099819 (Version 7)
Quarter: 2021Q2

REPORT INFORMATION
  Report Type: Report from Study
  Country: US (occurrence: US)
  Receive Date: 20180703
  Receipt Date: 20210605
  Transmission Date: 20210716
  Serious: Yes (Other)
  Sender: FDA-Public Use
  Company Number: US-AMGEN-USASL2018088530

PATIENT
  Age: 51 Year
  Sex: Female
  Weight: 67.94 kg

DRUGS (25)
  1. ENBREL [Suspect]
     Active Substance: ETANERCEPT
     Dosage: 50 MILLIGRAM, QWK
     Route: 065
     Dates: start: 2014, end: 201412
  2. PRILOSEC [Concomitant]
     Active Substance: OMEPRAZOLE MAGNESIUM
     Dosage: 20 MILLIGRAM
  3. OMEPRAZOLE. [Concomitant]
     Active Substance: OMEPRAZOLE
     Dosage: 20 MILLIGRAM, QD
  4. PREDNISONE. [Concomitant]
     Active Substance: PREDNISONE
     Dosage: 5 MILLIGRAM, QD
     Route: 048
  5. PREMARIN [Concomitant]
     Active Substance: ESTROGENS, CONJUGATED
     Dosage: 0.625 MILLIGRAM (TAKE 1 TABLET BY ORAL ROUTE EVERY DAY FOR 21)
     Route: 048
  6. PLAQUENIL [Concomitant]
     Active Substance: HYDROXYCHLOROQUINE SULFATE
     Indication: RHEUMATOID ARTHRITIS
     Dosage: 200 MILLIGRAM, QD
     Route: 048
  7. ENBREL [Suspect]
     Active Substance: ETANERCEPT
     Dosage: 50 MILLIGRAM, QWK
     Route: 065
  8. ENBREL [Suspect]
     Active Substance: ETANERCEPT
     Dosage: 50 MILLIGRAM, QWK
     Route: 065
     Dates: start: 2012, end: 201407
  9. OSTEO BI?FLEX [Concomitant]
     Active Substance: CHONDROITIN SULFATE A\GLUCOSAMINE
     Dosage: 250 MG?200 2QD
  10. POTASSIUM CITRATE. [Concomitant]
     Active Substance: POTASSIUM CITRATE
     Dosage: 10 MILLIEQUIVALENT, BID
     Route: 048
  11. ENBREL [Suspect]
     Active Substance: ETANERCEPT
     Dosage: 50 MILLIGRAM, QWK
     Route: 065
     Dates: end: 201103
  12. ENBREL [Suspect]
     Active Substance: ETANERCEPT
     Dosage: 50 MILLIGRAM, QWK
     Route: 065
     Dates: end: 201710
  13. SULFAMETHOXAZOLE;TRIMETHOPRIM [Concomitant]
     Active Substance: SULFAMETHOXAZOLE\TRIMETHOPRIM
     Dosage: 800 MG?160MG, QD
     Route: 048
  14. FOSAMAX [Concomitant]
     Active Substance: ALENDRONATE SODIUM
     Dosage: 70 MILLIGRAM, QWK
     Route: 048
  15. FOLIC ACID. [Concomitant]
     Active Substance: FOLIC ACID
     Dosage: 1 MILLIGRAM TAKE 3 TABLET BY ORAL ROUTE EVERY DAY
     Route: 048
  16. ENBREL [Suspect]
     Active Substance: ETANERCEPT
     Dosage: 50 MILLIGRAM, QWK
     Route: 065
     Dates: start: 2011, end: 201205
  17. ENBREL [Suspect]
     Active Substance: ETANERCEPT
     Dosage: 50 MILLIGRAM, QWK
     Route: 065
     Dates: start: 201710, end: 201805
  18. POMEGRANATE [Concomitant]
     Active Substance: POMEGRANATE
     Dosage: UNK
     Route: 065
  19. SYMBICORT [Concomitant]
     Active Substance: BUDESONIDE\FORMOTEROL FUMARATE DIHYDRATE
     Dosage: 160 MCG?4.5, INHALE 2 PUFF BY INHALATION ROUTE 2 TIMES EVERY DAY IN
  20. ENBREL [Suspect]
     Active Substance: ETANERCEPT
     Dosage: 50 MILLIGRAM, QWK
     Route: 065
     Dates: start: 201710, end: 201805
  21. ENBREL [Suspect]
     Active Substance: ETANERCEPT
     Dosage: 50 MILLIGRAM PER MILLILITRE, QWK
     Route: 058
     Dates: start: 201806
  22. HYDROXYCHLOROQUINE [Concomitant]
     Active Substance: HYDROXYCHLOROQUINE
     Indication: PRODUCT USED FOR UNKNOWN INDICATION
     Route: 065
  23. ENBREL [Suspect]
     Active Substance: ETANERCEPT
     Indication: RHEUMATOID ARTHRITIS
     Dosage: 50 MILLIGRAM, QWK
     Route: 065
     Dates: start: 20091001, end: 2009
  24. METHOTREXATE. [Concomitant]
     Active Substance: METHOTREXATE
     Dosage: 2.5 MILLIGRAM TAKE 4 BY ORAL ROUTE EVERY WEEK
     Route: 048
     Dates: start: 1980
  25. ACETAMINOPHEN AND CODEINE [Concomitant]
     Active Substance: ACETAMINOPHEN\CODEINE PHOSPHATE
     Indication: PAIN
     Dosage: 300 MG?30 MG, (TAKE 1 TABLET BY MOUTH EVERY 6 HOURS AS NEEDED)
     Route: 048

REACTIONS (23)
  - Myelopathy [Unknown]
  - Sjogren^s syndrome [Unknown]
  - Diverticulitis [Not Recovered/Not Resolved]
  - Extranodal marginal zone B-cell lymphoma (MALT type) [Unknown]
  - Urosepsis [Unknown]
  - Cough [Unknown]
  - Spinal osteoarthritis [Unknown]
  - Pulmonary fibrosis [Unknown]
  - Respiratory tract congestion [Unknown]
  - Large granular lymphocytosis [Unknown]
  - Musculoskeletal disorder [Unknown]
  - Female genital tract fistula [Unknown]
  - Headache [Unknown]
  - Neck pain [Unknown]
  - Vitamin D deficiency [Unknown]
  - Kidney infection [Unknown]
  - Arthralgia [Unknown]
  - Diffuse large B-cell lymphoma [Unknown]
  - Pneumonia [Not Recovered/Not Resolved]
  - Urinary tract infection [Unknown]
  - Influenza [Unknown]
  - Back pain [Unknown]
  - Mobility decreased [Unknown]

NARRATIVE: CASE EVENT DATE: 20101210
